FAERS Safety Report 9515534 (Version 3)
Quarter: 2013Q4

REPORT INFORMATION
  Report Type: Spontaneous
  Country: US (occurrence: US)
  Receive Date: 20130911
  Receipt Date: 20131010
  Transmission Date: 20140711
  Serious: Yes (Hospitalization)
  Sender: FDA-Public Use
  Company Number: US-ROCHE-1271742

PATIENT
  Age: 81 Year
  Sex: Male
  Weight: 81.72 kg

DRUGS (11)
  1. RITUXAN [Suspect]
     Indication: B-CELL LYMPHOMA
     Dosage: 4 TREATMENTS MG/KG
     Route: 065
     Dates: start: 20130621, end: 20130705
  2. CELLCEPT [Suspect]
     Indication: VASCULITIS
     Dosage: FOR AT LEAST 3 YEARS
     Route: 065
  3. AMLODIPINE [Concomitant]
     Route: 065
  4. LOSARTAN [Concomitant]
     Route: 065
  5. COUMADIN [Concomitant]
  6. LISINOPRIL [Concomitant]
     Route: 065
     Dates: end: 201308
  7. CYTOXAN [Concomitant]
     Indication: VASCULITIS
  8. VINCRISTIN [Concomitant]
     Indication: MYCOSIS FUNGOIDES
  9. DOXORUBICIN [Concomitant]
     Indication: MYCOSIS FUNGOIDES
  10. CYCLOPHOSPHAMIDE [Concomitant]
     Indication: MYCOSIS FUNGOIDES
  11. PREDNISONE [Concomitant]
     Indication: MYCOSIS FUNGOIDES

REACTIONS (13)
  - Malaise [Recovering/Resolving]
  - Pyrexia [Unknown]
  - Renal failure [Not Recovered/Not Resolved]
  - Red blood cell sedimentation rate increased [Unknown]
  - Decreased appetite [Recovered/Resolved]
  - Asthenia [Recovering/Resolving]
  - Fatigue [Not Recovered/Not Resolved]
  - Labile blood pressure [Recovering/Resolving]
  - Renal impairment [Not Recovered/Not Resolved]
  - Mycosis fungoides [Recovered/Resolved]
  - Angioedema [Recovered/Resolved]
  - Muscle atrophy [Unknown]
  - Inflammation [Unknown]
